FAERS Safety Report 5623364-X (Version None)
Quarter: 2008Q1

REPORT INFORMATION
  Report Type: 
  Country: None (occurrence: None)
  Receive Date: 20080212
  Receipt Date: 20080205
  Transmission Date: 20080703
  Serious: Yes (Other)
  Sender: FDA-Public Use
  Company Number: US-BAYER-200713844BWH

PATIENT
  Age: 67 Year
  Sex: Male

DRUGS (1)
  1. NEXAVAR [Suspect]
     Indication: RENAL CELL CARCINOMA
     Route: 048

REACTIONS (1)
  - RETINAL ARTERY OCCLUSION [None]
